FAERS Safety Report 8985662 (Version 1)
Quarter: 2012Q4

REPORT INFORMATION
  Report Type: 
  Country: US (occurrence: US)
  Receive Date: 20121226
  Receipt Date: 20121226
  Transmission Date: 20130627
  Serious: Yes (Other)
  Sender: FDA-Public Use
  Company Number: US-BAYER-2012-135197

PATIENT
  Sex: Male

DRUGS (1)
  1. MAGNEVIST [Suspect]
     Indication: MRI
     Dosage: 15 ml, ONCE

REACTIONS (3)
  - Throat irritation [None]
  - Urticaria [None]
  - Unevaluable event [None]
